FAERS Safety Report 4882410-1 (Version None)
Quarter: 2006Q1

REPORT INFORMATION
  Report Type: 
  Country: None (occurrence: None)
  Receive Date: 20060117
  Receipt Date: 20060102
  Transmission Date: 20060701
  Serious: Yes (Other)
  Sender: FDA-Public Use
  Company Number: US-AVENTIS-200610191US

PATIENT

DRUGS (2)
  1. LANTUS [Suspect]
     Dosage: DOSE: UNK
  2. OPTICLIK (INSULIN INJECTION PEN) [Suspect]

REACTIONS (3)
  - ACCIDENTAL OVERDOSE [None]
  - DIABETES MELLITUS INADEQUATE CONTROL [None]
  - DIABETIC KETOACIDOSIS [None]
